FAERS Safety Report 22808893 (Version 4)
Quarter: 2024Q3

REPORT INFORMATION
  Report Type: Spontaneous
  Country: US (occurrence: US)
  Receive Date: 20230810
  Receipt Date: 20240820
  Transmission Date: 20241017
  Serious: No
  Sender: ELI LILLY AND CO
  Company Number: US-ELI_LILLY_AND_COMPANY-US202308004481

PATIENT
  Age: 45 Year
  Sex: Female

DRUGS (70)
  1. MOUNJARO [Suspect]
     Active Substance: TIRZEPATIDE
     Indication: Glucose tolerance impaired
     Dosage: 2.5 MG, WEEKLY (1/W)
     Route: 058
     Dates: start: 2022
  2. MOUNJARO [Suspect]
     Active Substance: TIRZEPATIDE
     Indication: Glucose tolerance impaired
     Dosage: 2.5 MG, WEEKLY (1/W)
     Route: 058
     Dates: start: 2022
  3. MOUNJARO [Suspect]
     Active Substance: TIRZEPATIDE
     Indication: Glucose tolerance impaired
     Dosage: 2.5 MG, WEEKLY (1/W)
     Route: 058
     Dates: start: 2022
  4. MOUNJARO [Suspect]
     Active Substance: TIRZEPATIDE
     Indication: Glucose tolerance impaired
     Dosage: 2.5 MG, WEEKLY (1/W)
     Route: 058
     Dates: start: 2022
  5. MOUNJARO [Suspect]
     Active Substance: TIRZEPATIDE
     Indication: Weight control
  6. MOUNJARO [Suspect]
     Active Substance: TIRZEPATIDE
     Indication: Weight control
  7. MOUNJARO [Suspect]
     Active Substance: TIRZEPATIDE
     Indication: Weight control
  8. MOUNJARO [Suspect]
     Active Substance: TIRZEPATIDE
     Indication: Weight control
  9. MOUNJARO [Suspect]
     Active Substance: TIRZEPATIDE
     Indication: Thyroid disorder
  10. MOUNJARO [Suspect]
     Active Substance: TIRZEPATIDE
     Indication: Thyroid disorder
  11. MOUNJARO [Suspect]
     Active Substance: TIRZEPATIDE
     Indication: Thyroid disorder
  12. MOUNJARO [Suspect]
     Active Substance: TIRZEPATIDE
     Indication: Thyroid disorder
  13. MOUNJARO [Suspect]
     Active Substance: TIRZEPATIDE
     Indication: Insulin resistance
  14. MOUNJARO [Suspect]
     Active Substance: TIRZEPATIDE
     Indication: Insulin resistance
  15. MOUNJARO [Suspect]
     Active Substance: TIRZEPATIDE
     Indication: Insulin resistance
  16. MOUNJARO [Suspect]
     Active Substance: TIRZEPATIDE
     Indication: Insulin resistance
  17. MOUNJARO [Suspect]
     Active Substance: TIRZEPATIDE
     Indication: Glucose tolerance impaired
     Dosage: 5 MG, WEEKLY (1/W)
     Route: 058
  18. MOUNJARO [Suspect]
     Active Substance: TIRZEPATIDE
     Indication: Glucose tolerance impaired
     Dosage: 5 MG, WEEKLY (1/W)
     Route: 058
  19. MOUNJARO [Suspect]
     Active Substance: TIRZEPATIDE
     Indication: Glucose tolerance impaired
     Dosage: 5 MG, WEEKLY (1/W)
     Route: 058
  20. MOUNJARO [Suspect]
     Active Substance: TIRZEPATIDE
     Indication: Glucose tolerance impaired
     Dosage: 5 MG, WEEKLY (1/W)
     Route: 058
  21. MOUNJARO [Suspect]
     Active Substance: TIRZEPATIDE
     Indication: Weight control
  22. MOUNJARO [Suspect]
     Active Substance: TIRZEPATIDE
     Indication: Weight control
  23. MOUNJARO [Suspect]
     Active Substance: TIRZEPATIDE
     Indication: Weight control
  24. MOUNJARO [Suspect]
     Active Substance: TIRZEPATIDE
     Indication: Weight control
  25. MOUNJARO [Suspect]
     Active Substance: TIRZEPATIDE
     Indication: Thyroid disorder
  26. MOUNJARO [Suspect]
     Active Substance: TIRZEPATIDE
     Indication: Thyroid disorder
  27. MOUNJARO [Suspect]
     Active Substance: TIRZEPATIDE
     Indication: Thyroid disorder
  28. MOUNJARO [Suspect]
     Active Substance: TIRZEPATIDE
     Indication: Thyroid disorder
  29. MOUNJARO [Suspect]
     Active Substance: TIRZEPATIDE
     Indication: Insulin resistance
  30. MOUNJARO [Suspect]
     Active Substance: TIRZEPATIDE
     Indication: Insulin resistance
  31. MOUNJARO [Suspect]
     Active Substance: TIRZEPATIDE
     Indication: Insulin resistance
  32. MOUNJARO [Suspect]
     Active Substance: TIRZEPATIDE
     Indication: Insulin resistance
  33. MOUNJARO [Suspect]
     Active Substance: TIRZEPATIDE
     Indication: Glucose tolerance impaired
     Dosage: 7.5 MG, WEEKLY (1/W)
     Route: 058
  34. MOUNJARO [Suspect]
     Active Substance: TIRZEPATIDE
     Indication: Glucose tolerance impaired
     Dosage: 7.5 MG, WEEKLY (1/W)
     Route: 058
  35. MOUNJARO [Suspect]
     Active Substance: TIRZEPATIDE
     Indication: Glucose tolerance impaired
     Dosage: 7.5 MG, WEEKLY (1/W)
     Route: 058
  36. MOUNJARO [Suspect]
     Active Substance: TIRZEPATIDE
     Indication: Glucose tolerance impaired
     Dosage: 7.5 MG, WEEKLY (1/W)
     Route: 058
  37. MOUNJARO [Suspect]
     Active Substance: TIRZEPATIDE
     Indication: Weight control
  38. MOUNJARO [Suspect]
     Active Substance: TIRZEPATIDE
     Indication: Weight control
  39. MOUNJARO [Suspect]
     Active Substance: TIRZEPATIDE
     Indication: Weight control
  40. MOUNJARO [Suspect]
     Active Substance: TIRZEPATIDE
     Indication: Weight control
  41. MOUNJARO [Suspect]
     Active Substance: TIRZEPATIDE
     Indication: Thyroid disorder
  42. MOUNJARO [Suspect]
     Active Substance: TIRZEPATIDE
     Indication: Thyroid disorder
  43. MOUNJARO [Suspect]
     Active Substance: TIRZEPATIDE
     Indication: Thyroid disorder
  44. MOUNJARO [Suspect]
     Active Substance: TIRZEPATIDE
     Indication: Thyroid disorder
  45. MOUNJARO [Suspect]
     Active Substance: TIRZEPATIDE
     Indication: Insulin resistance
  46. MOUNJARO [Suspect]
     Active Substance: TIRZEPATIDE
     Indication: Insulin resistance
  47. MOUNJARO [Suspect]
     Active Substance: TIRZEPATIDE
     Indication: Insulin resistance
  48. MOUNJARO [Suspect]
     Active Substance: TIRZEPATIDE
     Indication: Insulin resistance
  49. MOUNJARO [Suspect]
     Active Substance: TIRZEPATIDE
     Indication: Glucose tolerance impaired
     Dosage: 10 MG, WEEKLY (1/W)
     Route: 058
     Dates: start: 202305
  50. MOUNJARO [Suspect]
     Active Substance: TIRZEPATIDE
     Indication: Glucose tolerance impaired
     Dosage: 10 MG, WEEKLY (1/W)
     Route: 058
     Dates: start: 202305
  51. MOUNJARO [Suspect]
     Active Substance: TIRZEPATIDE
     Indication: Glucose tolerance impaired
     Dosage: 10 MG, WEEKLY (1/W)
     Route: 058
     Dates: start: 202305
  52. MOUNJARO [Suspect]
     Active Substance: TIRZEPATIDE
     Indication: Glucose tolerance impaired
     Dosage: 10 MG, WEEKLY (1/W)
     Route: 058
     Dates: start: 202305
  53. MOUNJARO [Suspect]
     Active Substance: TIRZEPATIDE
     Indication: Glucose tolerance impaired
     Dosage: 10 MG, WEEKLY (1/W)
     Route: 058
     Dates: start: 202305
  54. MOUNJARO [Suspect]
     Active Substance: TIRZEPATIDE
     Indication: Glucose tolerance impaired
     Dosage: 10 MG, WEEKLY (1/W)
     Route: 058
     Dates: start: 202305
  55. MOUNJARO [Suspect]
     Active Substance: TIRZEPATIDE
     Indication: Glucose tolerance impaired
     Dosage: 10 MG, WEEKLY (1/W)
     Route: 058
     Dates: start: 202305
  56. MOUNJARO [Suspect]
     Active Substance: TIRZEPATIDE
     Indication: Weight control
     Dosage: 10 MG, WEEKLY (1/W)
     Route: 058
  57. MOUNJARO [Suspect]
     Active Substance: TIRZEPATIDE
     Indication: Weight control
     Dosage: 10 MG, WEEKLY (1/W)
     Route: 058
  58. MOUNJARO [Suspect]
     Active Substance: TIRZEPATIDE
     Indication: Weight control
     Dosage: 10 MG, WEEKLY (1/W)
     Route: 058
  59. MOUNJARO [Suspect]
     Active Substance: TIRZEPATIDE
     Indication: Weight control
     Dosage: 10 MG, WEEKLY (1/W)
     Route: 058
  60. MOUNJARO [Suspect]
     Active Substance: TIRZEPATIDE
     Indication: Weight control
     Dosage: 10 MG, WEEKLY (1/W)
     Route: 058
  61. MOUNJARO [Suspect]
     Active Substance: TIRZEPATIDE
     Indication: Thyroid disorder
     Dosage: 10 MG, WEEKLY (1/W)
     Route: 058
  62. MOUNJARO [Suspect]
     Active Substance: TIRZEPATIDE
     Indication: Thyroid disorder
     Dosage: 10 MG, WEEKLY (1/W)
     Route: 058
  63. MOUNJARO [Suspect]
     Active Substance: TIRZEPATIDE
     Indication: Thyroid disorder
     Dosage: 10 MG, WEEKLY (1/W)
     Route: 058
  64. MOUNJARO [Suspect]
     Active Substance: TIRZEPATIDE
     Indication: Thyroid disorder
     Dosage: 10 MG, WEEKLY (1/W)
     Route: 058
  65. MOUNJARO [Suspect]
     Active Substance: TIRZEPATIDE
     Indication: Thyroid disorder
     Dosage: 10 MG, WEEKLY (1/W)
     Route: 058
  66. MOUNJARO [Suspect]
     Active Substance: TIRZEPATIDE
     Indication: Insulin resistance
     Dosage: 10 MG, WEEKLY (1/W)
     Route: 058
  67. MOUNJARO [Suspect]
     Active Substance: TIRZEPATIDE
     Indication: Insulin resistance
     Dosage: 10 MG, WEEKLY (1/W)
     Route: 058
  68. MOUNJARO [Suspect]
     Active Substance: TIRZEPATIDE
     Indication: Insulin resistance
     Dosage: 10 MG, WEEKLY (1/W)
     Route: 058
  69. MOUNJARO [Suspect]
     Active Substance: TIRZEPATIDE
     Indication: Insulin resistance
     Dosage: 10 MG, WEEKLY (1/W)
     Route: 058
  70. MOUNJARO [Suspect]
     Active Substance: TIRZEPATIDE
     Indication: Insulin resistance
     Dosage: 10 MG, WEEKLY (1/W)
     Route: 058

REACTIONS (5)
  - Off label use [Unknown]
  - Product dose omission issue [Unknown]
  - Incorrect dose administered [Unknown]
  - Incorrect dose administered [Unknown]
  - Incorrect dose administered [Unknown]

NARRATIVE: CASE EVENT DATE: 20220101
